FAERS Safety Report 17598101 (Version 3)
Quarter: 2020Q2

REPORT INFORMATION
  Report Type: Spontaneous
  Country: ES (occurrence: ES)
  Receive Date: 20200330
  Receipt Date: 20200406
  Transmission Date: 20200713
  Serious: Yes (Other)
  Sender: FDA-Public Use
  Company Number: ES-ABBVIE-20K-144-3339706-00

PATIENT
  Age: 5 Day
  Sex: Female
  Weight: 1.24 kg

DRUGS (9)
  1. PANTOPRAZOL [Concomitant]
     Active Substance: PANTOPRAZOLE SODIUM
     Indication: MATERNAL EXPOSURE TIMING UNSPECIFIED
     Route: 064
  2. OMEPRAZOLE. [Concomitant]
     Active Substance: OMEPRAZOLE
     Indication: MATERNAL EXPOSURE TIMING UNSPECIFIED
     Route: 064
  3. CELESTONE [Concomitant]
     Active Substance: BETAMETHASONE
     Indication: PRODUCT USED FOR UNKNOWN INDICATION
  4. EUTIROX [Concomitant]
     Active Substance: LEVOTHYROXINE SODIUM
     Indication: MATERNAL EXPOSURE TIMING UNSPECIFIED
     Route: 064
  5. KALETRA [Suspect]
     Active Substance: LOPINAVIR\RITONAVIR
     Indication: MATERNAL EXPOSURE TIMING UNSPECIFIED
     Route: 064
  6. CEFTRIAXONA [Concomitant]
     Active Substance: CEFTRIAXONE
     Indication: MATERNAL EXPOSURE TIMING UNSPECIFIED
     Route: 064
  7. ENOXAPARINA [Concomitant]
     Active Substance: ENOXAPARIN
     Indication: MATERNAL EXPOSURE TIMING UNSPECIFIED
  8. HIDROXIL [Concomitant]
     Active Substance: ALUMINUM HYDROXIDE
     Indication: MATERNAL EXPOSURE TIMING UNSPECIFIED
     Route: 064
  9. CITRATO HIERRO [Concomitant]
     Indication: PRODUCT USED FOR UNKNOWN INDICATION

REACTIONS (3)
  - Bradycardia [Unknown]
  - Arrhythmia neonatal [Unknown]
  - Foetal exposure during pregnancy [Unknown]

NARRATIVE: CASE EVENT DATE: 20200317
